FAERS Safety Report 25391794 (Version 1)
Quarter: 2025Q2

REPORT INFORMATION
  Report Type: Spontaneous
  Country: NL (occurrence: NL)
  Receive Date: 20250603
  Receipt Date: 20250603
  Transmission Date: 20250716
  Serious: Yes (Hospitalization)
  Sender: MYLAN
  Company Number: NL-MYLANLABS-2025M1046197

PATIENT
  Age: 27 Year
  Sex: Male

DRUGS (48)
  1. METHOTREXATE [Suspect]
     Active Substance: METHOTREXATE
     Indication: Primary mediastinal large B-cell lymphoma
  2. METHOTREXATE [Suspect]
     Active Substance: METHOTREXATE
     Indication: Cardiac neoplasm malignant
     Route: 065
  3. METHOTREXATE [Suspect]
     Active Substance: METHOTREXATE
     Indication: Lymphoma
     Route: 065
  4. METHOTREXATE [Suspect]
     Active Substance: METHOTREXATE
  5. DOXORUBICIN [Suspect]
     Active Substance: DOXORUBICIN
     Indication: Primary mediastinal large B-cell lymphoma
  6. DOXORUBICIN [Suspect]
     Active Substance: DOXORUBICIN
     Indication: Cardiac neoplasm malignant
     Route: 065
  7. DOXORUBICIN [Suspect]
     Active Substance: DOXORUBICIN
     Indication: Lymphoma
     Route: 065
  8. DOXORUBICIN [Suspect]
     Active Substance: DOXORUBICIN
  9. PREDNISONE [Suspect]
     Active Substance: PREDNISONE
     Indication: Primary mediastinal large B-cell lymphoma
  10. PREDNISONE [Suspect]
     Active Substance: PREDNISONE
     Indication: Cardiac neoplasm malignant
     Route: 065
  11. PREDNISONE [Suspect]
     Active Substance: PREDNISONE
     Indication: Lymphoma
     Route: 065
  12. PREDNISONE [Suspect]
     Active Substance: PREDNISONE
  13. CYTARABINE [Suspect]
     Active Substance: CYTARABINE
     Indication: Primary mediastinal large B-cell lymphoma
  14. CYTARABINE [Suspect]
     Active Substance: CYTARABINE
     Indication: Cardiac neoplasm malignant
     Route: 065
  15. CYTARABINE [Suspect]
     Active Substance: CYTARABINE
     Indication: Lymphoma
     Route: 065
  16. CYTARABINE [Suspect]
     Active Substance: CYTARABINE
  17. CISPLATIN [Suspect]
     Active Substance: CISPLATIN
     Indication: Primary mediastinal large B-cell lymphoma
  18. CISPLATIN [Suspect]
     Active Substance: CISPLATIN
     Indication: Cardiac neoplasm malignant
     Route: 065
  19. CISPLATIN [Suspect]
     Active Substance: CISPLATIN
     Indication: Lymphoma
     Route: 065
  20. CISPLATIN [Suspect]
     Active Substance: CISPLATIN
  21. RITUXIMAB [Suspect]
     Active Substance: RITUXIMAB
     Indication: Primary mediastinal large B-cell lymphoma
  22. RITUXIMAB [Suspect]
     Active Substance: RITUXIMAB
     Indication: Cardiac neoplasm malignant
  23. RITUXIMAB [Suspect]
     Active Substance: RITUXIMAB
     Indication: Lymphoma
     Route: 065
  24. RITUXIMAB [Suspect]
     Active Substance: RITUXIMAB
     Route: 065
  25. RITUXIMAB [Suspect]
     Active Substance: RITUXIMAB
  26. RITUXIMAB [Suspect]
     Active Substance: RITUXIMAB
  27. RITUXIMAB [Suspect]
     Active Substance: RITUXIMAB
     Route: 065
  28. RITUXIMAB [Suspect]
     Active Substance: RITUXIMAB
     Route: 065
  29. CYCLOPHOSPHAMIDE [Suspect]
     Active Substance: CYCLOPHOSPHAMIDE
     Indication: Primary mediastinal large B-cell lymphoma
  30. CYCLOPHOSPHAMIDE [Suspect]
     Active Substance: CYCLOPHOSPHAMIDE
     Indication: Cardiac neoplasm malignant
     Route: 065
  31. CYCLOPHOSPHAMIDE [Suspect]
     Active Substance: CYCLOPHOSPHAMIDE
     Indication: Lymphoma
     Route: 065
  32. CYCLOPHOSPHAMIDE [Suspect]
     Active Substance: CYCLOPHOSPHAMIDE
  33. VINCRISTINE [Suspect]
     Active Substance: VINCRISTINE
     Indication: Primary mediastinal large B-cell lymphoma
  34. VINCRISTINE [Suspect]
     Active Substance: VINCRISTINE
     Indication: Cardiac neoplasm malignant
     Route: 065
  35. VINCRISTINE [Suspect]
     Active Substance: VINCRISTINE
     Indication: Lymphoma
     Route: 065
  36. VINCRISTINE [Suspect]
     Active Substance: VINCRISTINE
  37. BLEOMYCIN [Suspect]
     Active Substance: BLEOMYCIN SULFATE
     Indication: Primary mediastinal large B-cell lymphoma
  38. BLEOMYCIN [Suspect]
     Active Substance: BLEOMYCIN SULFATE
     Indication: Cardiac neoplasm malignant
     Route: 065
  39. BLEOMYCIN [Suspect]
     Active Substance: BLEOMYCIN SULFATE
     Indication: Lymphoma
     Route: 065
  40. BLEOMYCIN [Suspect]
     Active Substance: BLEOMYCIN SULFATE
  41. DEXAMETHASONE [Suspect]
     Active Substance: DEXAMETHASONE
     Indication: Primary mediastinal large B-cell lymphoma
  42. DEXAMETHASONE [Suspect]
     Active Substance: DEXAMETHASONE
     Indication: Cardiac neoplasm malignant
     Route: 065
  43. DEXAMETHASONE [Suspect]
     Active Substance: DEXAMETHASONE
     Indication: Lymphoma
     Route: 065
  44. DEXAMETHASONE [Suspect]
     Active Substance: DEXAMETHASONE
  45. PEMBROLIZUMAB [Suspect]
     Active Substance: PEMBROLIZUMAB
     Indication: Primary mediastinal large B-cell lymphoma
  46. PEMBROLIZUMAB [Suspect]
     Active Substance: PEMBROLIZUMAB
     Indication: Cardiac neoplasm malignant
     Route: 065
  47. PEMBROLIZUMAB [Suspect]
     Active Substance: PEMBROLIZUMAB
     Indication: Lymphoma
     Route: 065
  48. PEMBROLIZUMAB [Suspect]
     Active Substance: PEMBROLIZUMAB

REACTIONS (2)
  - Disease progression [Unknown]
  - Drug ineffective [Unknown]
